FAERS Safety Report 13997254 (Version 1)
Quarter: 2017Q3

REPORT INFORMATION
  Report Type: Spontaneous
  Country: JP (occurrence: JP)
  Receive Date: 20170921
  Receipt Date: 20170921
  Transmission Date: 20171128
  Serious: Yes (Other)
  Sender: FDA-Public Use
  Company Number: JP-ELI_LILLY_AND_COMPANY-JP201709007575

PATIENT
  Age: 70 Year
  Sex: Male

DRUGS (2)
  1. ERBITUX [Suspect]
     Active Substance: CETUXIMAB
     Indication: RECTAL CANCER
     Dosage: 250 MG/M2, WEEKLY (1/W)
     Route: 041
     Dates: start: 20170425, end: 201707
  2. XELODA [Concomitant]
     Active Substance: CAPECITABINE
     Indication: RECTAL CANCER
     Dosage: 500 MG/M2, BID
     Route: 048
     Dates: start: 20170425, end: 201707

REACTIONS (3)
  - Off label use [Unknown]
  - Hyperglycaemia [Recovered/Resolved]
  - Performance status decreased [Recovered/Resolved]

NARRATIVE: CASE EVENT DATE: 201706
